FAERS Safety Report 20834923 (Version 6)
Quarter: 2022Q3

REPORT INFORMATION
  Report Type: Spontaneous
  Country: US (occurrence: US)
  Receive Date: 20220516
  Receipt Date: 20220926
  Transmission Date: 20221027
  Serious: No
  Sender: FDA-Public Use
  Company Number: US-JNJFOC-20220510795

PATIENT
  Age: 39 Year
  Sex: Female
  Weight: 54.934 kg

DRUGS (2)
  1. TREMFYA [Suspect]
     Active Substance: GUSELKUMAB
     Indication: Psoriasis
     Route: 058
     Dates: start: 20220404
  2. TREMFYA [Suspect]
     Active Substance: GUSELKUMAB
     Indication: Psoriatic arthropathy

REACTIONS (5)
  - Product complaint [Unknown]
  - Underdose [Unknown]
  - Product quality issue [Unknown]
  - Accidental exposure to product [Unknown]
  - Psoriasis [Unknown]

NARRATIVE: CASE EVENT DATE: 20220501
